FAERS Safety Report 8992364 (Version 2)
Quarter: 2013Q1

REPORT INFORMATION
  Report Type: Spontaneous
  Country: NL (occurrence: NL)
  Receive Date: 20121231
  Receipt Date: 20130222
  Transmission Date: 20140127
  Serious: No
  Sender: FDA-Public Use
  Company Number: NL-JNJFOC-20121209163

PATIENT
  Sex: Female

DRUGS (1)
  1. FENTANYL [Suspect]
     Indication: PRODUCT USED FOR UNKNOWN INDICATION
     Route: 062
     Dates: start: 20121210, end: 20121214

REACTIONS (4)
  - Rash [Recovered/Resolved]
  - Inappropriate schedule of drug administration [Unknown]
  - Product quality issue [None]
  - Product adhesion issue [None]
